FAERS Safety Report 5000056-1 (Version None)
Quarter: 2006Q2

REPORT INFORMATION
  Report Type: 
  Country: None (occurrence: None)
  Receive Date: 20060509
  Receipt Date: 20060426
  Transmission Date: 20061013
  Serious: Yes (Other)
  Sender: FDA-Public Use
  Company Number: GBS051018908

PATIENT
  Age: 12 Year
  Sex: Male
  Weight: 38.5 kg

DRUGS (1)
  1. STRATTERA [Suspect]
     Indication: ATTENTION DEFICIT/HYPERACTIVITY DISORDER
     Dosage: 40 MG, ORAL
     Route: 048
     Dates: start: 20050828, end: 20051013

REACTIONS (2)
  - ABNORMAL BEHAVIOUR [None]
  - DEPRESSIVE SYMPTOM [None]
